FAERS Safety Report 8128197-0 (Version None)
Quarter: 2011Q4

REPORT INFORMATION
  Report Type: 
  Country: None (occurrence: None)
  Receive Date: 20111227
  Receipt Date: 20110920
  Transmission Date: 20120403
  Serious: No
  Sender: FDA-Public Use
  Company Number: PHHY2011US59676

PATIENT
  Age: 22 Year
  Sex: Male
  Weight: 83.7 kg

DRUGS (1)
  1. GILENYA [Suspect]
     Indication: MULTIPLE SCLEROSIS
     Dosage: 0.5 MG, QD, ORAL
     Route: 048
     Dates: start: 20110601

REACTIONS (6)
  - SINUSITIS [None]
  - FATIGUE [None]
  - HEADACHE [None]
  - RHINORRHOEA [None]
  - DRY EYE [None]
  - OROPHARYNGEAL PAIN [None]
